FAERS Safety Report 17794133 (Version 1)
Quarter: 2020Q2

REPORT INFORMATION
  Report Type: Spontaneous
  Country: US (occurrence: US)
  Receive Date: 20200515
  Receipt Date: 20200515
  Transmission Date: 20200714
  Serious: Yes (Other)
  Sender: FDA-Public Use
  Company Number: NVSC2020US131634

PATIENT
  Sex: Male

DRUGS (1)
  1. TYKERB [Suspect]
     Active Substance: LAPATINIB DITOSYLATE
     Indication: COLON CANCER
     Dosage: 500 MG, QD
     Route: 048
     Dates: start: 20200221

REACTIONS (1)
  - Thrombosis [Unknown]
